FAERS Safety Report 21661353 (Version 1)
Quarter: 2022Q4

REPORT INFORMATION
  Report Type: Report from Study
  Country: GR (occurrence: GR)
  Receive Date: 20221130
  Receipt Date: 20221130
  Transmission Date: 20230113
  Serious: Yes (Hospitalization, Other)
  Sender: FDA-Public Use
  Company Number: GR-TAKEDA-2022TUS090055

PATIENT
  Age: 81 Year
  Sex: Male

DRUGS (1)
  1. HUMAN IMMUNOGLOBULIN G\HYALURONIDASE RECOMBINANT HUMAN [Suspect]
     Active Substance: HUMAN IMMUNOGLOBULIN G\HYALURONIDASE RECOMBINANT HUMAN
     Indication: Immunodeficiency
     Dosage: 1 DOSAGE FORM, MONTHLY
     Route: 058
     Dates: start: 20181004

REACTIONS (4)
  - Leukaemia [Recovered/Resolved]
  - Drug hypersensitivity [Recovered/Resolved]
  - Asymptomatic COVID-19 [Recovered/Resolved]
  - Immunoglobulins decreased [Recovered/Resolved]

NARRATIVE: CASE EVENT DATE: 20221102
